FAERS Safety Report 6264575-2 (Version None)
Quarter: 2009Q3

REPORT INFORMATION
  Report Type: 
  Country: None (occurrence: None)
  Receive Date: 20090710
  Receipt Date: 20090701
  Transmission Date: 20100115
  Serious: Yes (Other)
  Sender: FDA-Public Use
  Company Number: PHHY2009JP15450

PATIENT
  Age: 77 Year
  Sex: Male
  Weight: 57 kg

DRUGS (2)
  1. GLEEVEC [Suspect]
     Indication: GASTROINTESTINAL STROMAL TUMOUR
     Dosage: 200 MG DAILY
     Route: 048
     Dates: start: 20051031, end: 20051107
  2. GLEEVEC [Suspect]
     Dosage: 400 MG DAILY
     Route: 048
     Dates: start: 20051108, end: 20051201

REACTIONS (6)
  - CONDITION AGGRAVATED [None]
  - FIBROMA [None]
  - GENERALISED OEDEMA [None]
  - OESOPHAGEAL STENOSIS [None]
  - PLEURAL EFFUSION [None]
  - RETROPERITONEAL NEOPLASM [None]
